FAERS Safety Report 15560490 (Version 1)
Quarter: 2018Q4

REPORT INFORMATION
  Report Type: Spontaneous
  Country: US (occurrence: US)
  Receive Date: 20181029
  Receipt Date: 20181029
  Transmission Date: 20190205
  Serious: No
  Sender: FDA-Public Use
  Company Number: US-BRACCO-2018US04862

PATIENT
  Sex: Female

DRUGS (1)
  1. READI-CAT 2 [Suspect]
     Active Substance: BARIUM SULFATE
     Indication: COMPUTERISED TOMOGRAM
     Dosage: UNK
     Route: 048
     Dates: start: 20180909, end: 20180909

REACTIONS (2)
  - No adverse event [Unknown]
  - Liquid product physical issue [Unknown]

NARRATIVE: CASE EVENT DATE: 20180909
